FAERS Safety Report 9285023 (Version 1)
Quarter: 2013Q2

REPORT INFORMATION
  Report Type: Spontaneous
  Country: SE (occurrence: SE)
  Receive Date: 20130513
  Receipt Date: 20130513
  Transmission Date: 20140414
  Serious: Yes (Other)
  Sender: FDA-Public Use
  Company Number: SE-009507513-1305SWE000458

PATIENT
  Age: 83 Year
  Sex: Female

DRUGS (8)
  1. ZOCORD 20 MG [Suspect]
     Dosage: UNK
     Route: 048
     Dates: end: 2012
  2. TROMBYL [Concomitant]
     Dosage: UNK
  3. IMDUR [Concomitant]
     Dosage: UNK
  4. HYDREA [Concomitant]
     Dosage: UNK
  5. METOPROLOL [Concomitant]
     Dosage: UNK
  6. AMITRIL [Concomitant]
     Dosage: UNK
  7. OMEPRAZOLE [Concomitant]
     Dosage: UNK
  8. LIPITOR [Suspect]

REACTIONS (9)
  - Breast cancer [Unknown]
  - Malignant breast lump removal [Unknown]
  - Fatigue [Unknown]
  - Headache [Unknown]
  - Myalgia [Unknown]
  - Heart rate irregular [Unknown]
  - Balance disorder [Unknown]
  - Constipation [Unknown]
  - Abdominal distension [Unknown]
